FAERS Safety Report 8953622 (Version 1)
Quarter: 2012Q4

REPORT INFORMATION
  Report Type: 
  Country: FR (occurrence: FR)
  Receive Date: 20121206
  Receipt Date: 20121206
  Transmission Date: 20130627
  Serious: Yes (Hospitalization)
  Sender: FDA-Public Use
  Company Number: FR-UCBSA-072409

PATIENT
  Age: 73 Year
  Sex: Male

DRUGS (9)
  1. XYZALL [Suspect]
     Dosage: UNKNOWN DOSE
     Route: 048
     Dates: start: 20121103
  2. CALCIPARINE [Suspect]
     Dosage: UNKNOWN DOSE
     Dates: start: 20121031
  3. INEXIUM [Suspect]
     Dosage: UNKNOWN DOSE
     Dates: start: 20121101, end: 20121105
  4. CLAFORAN [Concomitant]
     Indication: ANTIBIOTIC PROPHYLAXIS
     Dosage: SINGLE DOSE
     Dates: start: 20121023
  5. TAHOR [Concomitant]
     Dosage: DOSE: 40MG
  6. KARDEGIC [Concomitant]
     Dosage: DOSE:75MG
  7. PULMICORT [Concomitant]
     Dosage: UNKNOWN DOSE
  8. BRICANYL [Concomitant]
     Dosage: UNKNOWN DOSE
  9. STILNOX [Concomitant]
     Dosage: UNKNOWN DOSE

REACTIONS (1)
  - Rash erythematous [Unknown]
